FAERS Safety Report 13987367 (Version 2)
Quarter: 2017Q4

REPORT INFORMATION
  Report Type: Report from Study
  Country: US (occurrence: US)
  Receive Date: 20170919
  Receipt Date: 20171101
  Transmission Date: 20180321
  Serious: Yes (Death)
  Sender: FDA-Public Use
  Company Number: US-BAUSCH-BL-2017-027360

PATIENT
  Sex: Female
  Weight: 74.91 kg

DRUGS (1)
  1. XENAZINE [Suspect]
     Active Substance: TETRABENAZINE
     Indication: HUNTINGTON^S DISEASE
     Route: 048
     Dates: start: 201607

REACTIONS (2)
  - Disease progression [Fatal]
  - Huntington^s disease [Fatal]
